FAERS Safety Report 10044723 (Version 2)
Quarter: 2014Q2

REPORT INFORMATION
  Report Type: Spontaneous
  Country: US (occurrence: US)
  Receive Date: 20140328
  Receipt Date: 20140410
  Transmission Date: 20141212
  Serious: Yes (Death)
  Sender: FDA-Public Use
  Company Number: US-ENDO PHARMACEUTICALS INC.-SPLN20140035

PATIENT
  Age: 12 Year
  Sex: Male
  Weight: 41.4 kg

DRUGS (4)
  1. TOPAMAX [Concomitant]
     Indication: CONVULSION
     Dosage: 125MG (75MG AM AND 50MG PM)
     Route: 065
  2. LAMICTAL [Concomitant]
     Indication: CONVULSION
     Route: 065
  3. KEPPRA [Concomitant]
     Indication: CONVULSION
     Route: 065
  4. SUPPRELIN LA [Suspect]
     Indication: PRECOCIOUS PUBERTY
     Route: 058
     Dates: start: 20100507

REACTIONS (2)
  - Death [None]
  - Convulsion [None]
